FAERS Safety Report 11618874 (Version 1)
Quarter: 2015Q4

REPORT INFORMATION
  Report Type: Spontaneous
  Country: DE (occurrence: DE)
  Receive Date: 20151012
  Receipt Date: 20151012
  Transmission Date: 20160304
  Serious: Yes (Other)
  Sender: FDA-Public Use
  Company Number: DE-MYLANLABS-2015M1034266

PATIENT

DRUGS (2)
  1. DOXEPIN [Suspect]
     Active Substance: DOXEPIN
     Indication: DEPRESSION
     Route: 065
  2. ZOLPIDEM [Suspect]
     Active Substance: ZOLPIDEM\ZOLPIDEM TARTRATE
     Indication: SLEEP DISORDER
     Route: 065

REACTIONS (6)
  - Anterograde amnesia [Unknown]
  - Somnambulism [Unknown]
  - Accidental overdose [Unknown]
  - Toxicity to various agents [Unknown]
  - Abnormal sleep-related event [Unknown]
  - Confusional state [Unknown]
